FAERS Safety Report 12232296 (Version 1)
Quarter: 2016Q2

REPORT INFORMATION
  Report Type: Spontaneous
  Country: IN (occurrence: IN)
  Receive Date: 20160401
  Receipt Date: 20160401
  Transmission Date: 20160815
  Serious: Yes (Other)
  Sender: FDA-Public Use
  Company Number: IN-BAYER-2016-058344

PATIENT
  Age: 19 Year

DRUGS (4)
  1. ETHYL ALCOHOL [Suspect]
     Active Substance: ALCOHOL
  2. AMLODIPINE [Suspect]
     Active Substance: AMLODIPINE BESYLATE
  3. ACETYLSALICYLIC ACID({=100 MG) [Suspect]
     Active Substance: ASPIRIN
  4. ATENOLOL. [Suspect]
     Active Substance: ATENOLOL

REACTIONS (1)
  - Toxicity to various agents [Recovered/Resolved]
